FAERS Safety Report 8835143 (Version 1)
Quarter: 2012Q4

REPORT INFORMATION
  Report Type: 
  Country: JP (occurrence: JP)
  Receive Date: 20121011
  Receipt Date: 20121011
  Transmission Date: 20130627
  Serious: No
  Sender: FDA-Public Use
  Company Number: JP-ROCHE-1143818

PATIENT
  Age: 2 Year
  Weight: 11.5 kg

DRUGS (2)
  1. TAMIFLU [Suspect]
     Indication: PRODUCT USED FOR UNKNOWN INDICATION
     Route: 048
  2. TAMIFLU [Suspect]
     Dosage: Dosage is uncertain.
     Route: 048

REACTIONS (2)
  - Accidental exposure to product by child [Unknown]
  - No adverse event [Unknown]
